FAERS Safety Report 4584157-8 (Version None)
Quarter: 2005Q1

REPORT INFORMATION
  Report Type: 
  Country: None (occurrence: None)
  Receive Date: 20050125
  Receipt Date: 20041114
  Transmission Date: 20050727
  Serious: No
  Sender: FDA-Public Use
  Company Number: USA041182868

PATIENT
  Age: 82 Year
  Sex: Female
  Weight: 58 kg

DRUGS (2)
  1. FORTEO [Suspect]
     Indication: OSTEOPOROSIS
     Dosage: 20 UG/1 DAY
     Dates: start: 20041029
  2. EVISTA [Suspect]
     Indication: OSTEOPOROSIS
     Dosage: 60 MG DAY

REACTIONS (9)
  - ERYTHEMA [None]
  - EYE IRRITATION [None]
  - FALL [None]
  - FEAR OF FALLING [None]
  - FEELING ABNORMAL [None]
  - HEADACHE [None]
  - INJECTION SITE ERYTHEMA [None]
  - INJECTION SITE HAEMORRHAGE [None]
  - NERVOUSNESS [None]
